FAERS Safety Report 8423399-8 (Version None)
Quarter: 2012Q2

REPORT INFORMATION
  Report Type: 
  Country: None (occurrence: None)
  Receive Date: 20120608
  Receipt Date: 20120530
  Transmission Date: 20120825
  Serious: Yes (Hospitalization)
  Sender: FDA-Public Use
  Company Number: JP-VERTEX PHARMACEUTICALS INC.-AE-2012-008160

PATIENT
  Age: 65 Year
  Sex: Female

DRUGS (4)
  1. PEGINTERFERON ALFA-2B [Concomitant]
     Route: 051
     Dates: start: 20120529
  2. TELAVIC (TELAPREVIR) [Suspect]
     Indication: HEPATITIS C
     Route: 048
     Dates: start: 20120522, end: 20120526
  3. PEGINTERFERON ALFA-2B [Concomitant]
     Indication: HEPATITIS C
     Route: 051
     Dates: start: 20120522, end: 20120522
  4. RIBAVIRIN [Concomitant]
     Route: 048
     Dates: start: 20120522

REACTIONS (3)
  - DYSPNOEA [None]
  - RASH [None]
  - ERYTHEMA [None]
